FAERS Safety Report 7260604-8 (Version None)
Quarter: 2011Q1

REPORT INFORMATION
  Report Type: 
  Country: None (occurrence: None)
  Receive Date: 20110130
  Receipt Date: 20101215
  Transmission Date: 20110831
  Serious: No
  Sender: FDA-Public Use
  Company Number: US-ABBOTT-10P-163-0684589-00

PATIENT
  Age: 35 Year
  Sex: Male

DRUGS (2)
  1. COLAZAL [Concomitant]
     Indication: COLITIS ULCERATIVE
  2. HUMIRA [Suspect]
     Indication: COLITIS ULCERATIVE
     Dates: start: 20100809, end: 20101106

REACTIONS (9)
  - SINUSITIS [None]
  - APHAGIA [None]
  - TINNITUS [None]
  - MALAISE [None]
  - WRONG TECHNIQUE IN DRUG USAGE PROCESS [None]
  - NASOPHARYNGITIS [None]
  - DRUG INEFFECTIVE [None]
  - PYREXIA [None]
  - FATIGUE [None]
